FAERS Safety Report 6447061-6 (Version None)
Quarter: 2009Q4

REPORT INFORMATION
  Report Type: 
  Country: None (occurrence: None)
  Receive Date: 20091110
  Receipt Date: 20090720
  Transmission Date: 20100525
  Serious: No
  Sender: FDA-Public Use
  Company Number: 1000007608

PATIENT
  Age: 81 Year
  Sex: Female

DRUGS (9)
  1. SAVELLA [Suspect]
     Indication: FIBROMYALGIA
     Dosage: 12.5 MG (12.5 MG, 1 IN 1 D), ORAL
     Route: 048
     Dates: start: 20090706, end: 20090706
  2. PULMICORT [Concomitant]
  3. VENTOLIN [Concomitant]
  4. OXYCODONE HCL AND ACETAMINOPHEN [Concomitant]
  5. METHOCARBAMOL [Concomitant]
  6. DILTIAZEM [Concomitant]
  7. ALPRAZOLAM [Concomitant]
  8. BENASEPRIL [Concomitant]
  9. AMLODIPINE [Concomitant]

REACTIONS (1)
  - DIZZINESS [None]
